FAERS Safety Report 19666457 (Version 1)
Quarter: 2021Q3

REPORT INFORMATION
  Report Type: Spontaneous
  Country: KR (occurrence: KR)
  Receive Date: 20210806
  Receipt Date: 20210806
  Transmission Date: 20211014
  Serious: Yes (Other)
  Sender: FDA-Public Use
  Company Number: KR-LUPIN PHARMACEUTICALS INC.-2021-13788

PATIENT
  Age: 54 Year
  Sex: Male

DRUGS (2)
  1. BEVACIZUMAB. [Suspect]
     Active Substance: BEVACIZUMAB
     Indication: MACULAR TELANGIECTASIA
     Dosage: UNK (TWO INJECTIONS IN THE LEFT EYE)
  2. TRIAMCINOLONE [Suspect]
     Active Substance: TRIAMCINOLONE
     Indication: MACULAR TELANGIECTASIA
     Dosage: UNK (ONE INJECTIONS IN THE LEFT EYE)

REACTIONS (1)
  - Therapy non-responder [Unknown]
